FAERS Safety Report 13334115 (Version 3)
Quarter: 2017Q2

REPORT INFORMATION
  Report Type: Spontaneous
  Country: US (occurrence: US)
  Receive Date: 20170314
  Receipt Date: 20170620
  Transmission Date: 20170830
  Serious: No
  Sender: FDA-Public Use
  Company Number: US-HORIZON-RAV-0071-2017

PATIENT
  Age: 13 Year
  Sex: Male

DRUGS (7)
  1. STRATTERA [Concomitant]
     Active Substance: ATOMOXETINE HYDROCHLORIDE
  2. CYCLINEX [Concomitant]
  3. ARGININE [Concomitant]
     Active Substance: ARGININE
  4. RITALIN [Concomitant]
     Active Substance: METHYLPHENIDATE HYDROCHLORIDE
  5. PROPHREE [Concomitant]
  6. RAVICTI [Suspect]
     Active Substance: GLYCEROL PHENYLBUTYRATE
     Indication: ARGININOSUCCINATE SYNTHETASE DEFICIENCY
     Dosage: 3.4 ML THREE TIMES DAILY
     Dates: start: 20131007
  7. LEXAPRO [Concomitant]
     Active Substance: ESCITALOPRAM OXALATE

REACTIONS (2)
  - Abnormal behaviour [Unknown]
  - Hormone level abnormal [Unknown]

NARRATIVE: CASE EVENT DATE: 201703
